FAERS Safety Report 8974483 (Version 2)
Quarter: 2013Q2

REPORT INFORMATION
  Report Type: Spontaneous
  Country: US (occurrence: None)
  Receive Date: 20120508
  Receipt Date: 20120709
  Transmission Date: 20140414
  Serious: Yes (Hospitalization)
  Sender: FDA-Public Use
  Company Number: 2012HGS-003204

PATIENT
  Age: 44 Year
  Sex: Female
  Weight: 57.61 kg

DRUGS (24)
  1. BENLYSTA [Concomitant]
     Indication: SYSTEMIC LUPUS ERYTHEMATOSUS
     Dosage: 1 IN 28 DAYS
     Route: 041
     Dates: start: 20111201
  2. FOSAMAX [Concomitant]
  3. SYNTHROID (LEVOTHYROXINE SODIUM) [Concomitant]
  4. ESTRADIOL [Concomitant]
  5. CYMBALTA [Concomitant]
  6. PREDNISONE [Concomitant]
  7. CALCIUM [Concomitant]
  8. FISH OIL (FISH OIL) [Concomitant]
  9. VITAMIN B COMPLEX [Concomitant]
  10. PROMETRIUM [Concomitant]
  11. PROPANOLOL [Concomitant]
  12. MEXILETINE [Concomitant]
  13. IBUPROFEN [Concomitant]
  14. GABAPENTIN [Concomitant]
  15. TEGRETOL (CARBAMAZEPINE) UNKNOWN [Concomitant]
  16. PLAQUENIL [Concomitant]
  17. PLAVIX [Concomitant]
  18. COZAAR [Concomitant]
  19. BABY ASPIRIN [Concomitant]
  20. AMLODIPINE (AMLODIPINE) [Concomitant]
  21. AMITRIPTYLINE [Concomitant]
  22. STOOL SOFTENER (DOCUSATE SODIUM) [Concomitant]
  23. ATIVAN (LORAZEPAM) [Concomitant]
  24. LEVORPHANOL [Concomitant]

REACTIONS (1)
  - Pneumonia [None]
